FAERS Safety Report 8997662 (Version 8)
Quarter: 2014Q2

REPORT INFORMATION
  Report Type: Spontaneous
  Country: DE (occurrence: DE)
  Receive Date: 20130104
  Receipt Date: 20140512
  Transmission Date: 20141212
  Serious: Yes (Hospitalization)
  Sender: FDA-Public Use
  Company Number: DE-VERTEX PHARMACEUTICALS INC.-2013-000106

PATIENT
  Age: 53 Year
  Sex: Female

DRUGS (17)
  1. INCIVO [Suspect]
     Indication: HEPATITIS C
     Dosage: 2250 (UNIT UNSPECIFIED)
     Route: 048
     Dates: start: 20121121
  2. PEGINTERFERON ALFA-2A [Suspect]
     Indication: HEPATITIS C
     Dosage: DOSAGE FORM: UNSPECIFIED, 180 (UNIT UNSPECIFIED)
     Route: 058
     Dates: start: 20121121
  3. RIBAVIRIN [Suspect]
     Indication: HEPATITIS C
     Dosage: DOSAGE FORM: UNSPECIFIED, 600 (UNIT UNSPECIFIED)
     Route: 048
     Dates: start: 20121121
  4. CYNT [Concomitant]
     Indication: PRODUCT USED FOR UNKNOWN INDICATION
     Dosage: 0.3 MG, QD
     Route: 065
  5. CANDESARTAN [Concomitant]
     Indication: HYPERTENSION
     Dosage: 16 MG, BID
     Route: 048
  6. TORASEMID [Concomitant]
     Indication: PRODUCT USED FOR UNKNOWN INDICATION
     Dosage: 50 MG, UNK
     Route: 065
  7. HYDROCHLOROTHIAZIDE [Concomitant]
     Indication: PRODUCT USED FOR UNKNOWN INDICATION
     Dosage: 25 MG, QD
     Route: 065
  8. L-THYROXIN [Concomitant]
     Indication: PRODUCT USED FOR UNKNOWN INDICATION
     Dosage: 150 MG, QD
     Route: 065
  9. BICANORM [Concomitant]
     Indication: PRODUCT USED FOR UNKNOWN INDICATION
     Dosage: 1 G UNK
     Route: 065
  10. ROCALTROL [Concomitant]
     Indication: PRODUCT USED FOR UNKNOWN INDICATION
     Dosage: 0.5 MG, QD
     Route: 065
  11. RAMIPRIL [Concomitant]
     Indication: HYPERTENSION
     Dosage: 5 MG, BID
     Route: 048
  12. AMLODIPINE [Concomitant]
     Indication: HYPERTENSION
     Dosage: 5 MG, QD
     Route: 048
  13. BISOPROLOL [Concomitant]
     Indication: HYPERTENSION
     Dosage: 5 MG, BID
     Route: 048
  14. CLONIDINE [Concomitant]
     Indication: HYPERTENSION
     Dosage: 300 ?G, BID
     Route: 048
  15. LONOLOX [Concomitant]
     Dosage: 2.5 MG, TID
     Route: 065
  16. BLOPRESS [Concomitant]
     Dosage: 16 MG, BID
     Route: 065
  17. OMEPRAZOLE [Concomitant]
     Dosage: 20 MG, QD
     Route: 065

REACTIONS (5)
  - Dehydration [Recovered/Resolved]
  - Urinary tract infection [Recovered/Resolved]
  - Gastritis haemorrhagic [Unknown]
  - Renal failure [Recovered/Resolved]
  - Anaemia [Recovered/Resolved]
